FAERS Safety Report 20201266 (Version 3)
Quarter: 2022Q1

REPORT INFORMATION
  Report Type: Spontaneous
  Country: PL (occurrence: PL)
  Receive Date: 20211217
  Receipt Date: 20220120
  Transmission Date: 20220423
  Serious: Yes (Other)
  Sender: FDA-Public Use
  Company Number: PL-002147023-NVSC2021PL271298

PATIENT
  Age: 65 Year
  Sex: Male

DRUGS (18)
  1. EPLERENONE [Suspect]
     Active Substance: EPLERENONE
     Dosage: 50 MG, ONCE A DAY
     Route: 065
  2. VITAMINS [Suspect]
     Active Substance: VITAMINS
     Dosage: 3 X 1 CAPS
     Route: 065
  3. VITAMINS [Suspect]
     Active Substance: VITAMINS
     Dosage: 1 DOSAGE FORM, QD
     Route: 065
  4. VITAMINS [Suspect]
     Active Substance: VITAMINS
     Dosage: 6 DOSAGE FORM, QD
     Route: 065
  5. VITAMINS [Suspect]
     Active Substance: VITAMINS
     Dosage: 2 DOSAGE FORM, TID
     Route: 065
  6. VITAMINS [Suspect]
     Active Substance: VITAMINS
     Dosage: 3 X 2 CAPS
     Route: 065
  7. SACUBITRIL\VALSARTAN [Suspect]
     Active Substance: SACUBITRIL\VALSARTAN
     Dosage: 100 MG, 2X/DAY
     Route: 065
  8. SACUBITRIL\VALSARTAN [Suspect]
     Active Substance: SACUBITRIL\VALSARTAN
     Dosage: 50 MG, 2X/DAY
     Route: 065
  9. EZETIMIBE [Suspect]
     Active Substance: EZETIMIBE
     Dosage: 10 MG, 1X/DAY
     Route: 065
  10. BISOPROLOL [Suspect]
     Active Substance: BISOPROLOL
     Dosage: 5 MG, 2X/DAY
     Route: 065
  11. BISOPROLOL [Suspect]
     Active Substance: BISOPROLOL
     Dosage: 2.5 MG, 1X/DAY
     Route: 065
  12. IVABRADINE [Suspect]
     Active Substance: IVABRADINE
     Dosage: 5 MG, 2X/DAY
     Route: 065
  13. IVABRADINE [Suspect]
     Active Substance: IVABRADINE
     Dosage: 10 MG, QD
     Route: 065
  14. TORSEMIDE [Suspect]
     Active Substance: TORSEMIDE
     Dosage: 10 MG, 2X/DAY
     Route: 065
  15. TORSEMIDE [Suspect]
     Active Substance: TORSEMIDE
     Dosage: 10 MG, 1X/DAY
     Route: 065
  16. TORSEMIDE [Suspect]
     Active Substance: TORSEMIDE
     Dosage: 20 MG, 1X/DAY
     Route: 065
  17. TRANDOLAPRIL [Suspect]
     Active Substance: TRANDOLAPRIL
     Dosage: 2 MG, 1X/DAY
     Route: 065
  18. AMIODARONE [Suspect]
     Active Substance: AMIODARONE
     Dosage: UNK

REACTIONS (28)
  - Ventricular tachycardia [Unknown]
  - Interstitial lung disease [Unknown]
  - Dyspnoea at rest [Unknown]
  - Cardiac failure [Unknown]
  - Ventricular arrhythmia [Unknown]
  - Pulmonary oedema [Unknown]
  - Palpitations [Unknown]
  - Pallor [Unknown]
  - Abdominal distension [Unknown]
  - Cold sweat [Unknown]
  - Hypopnoea [Unknown]
  - Asthenia [Unknown]
  - Bronchial wall thickening [Unknown]
  - Visual field defect [Unknown]
  - Body mass index increased [Unknown]
  - Dizziness [Unknown]
  - Jugular vein distension [Unknown]
  - Device malfunction [Unknown]
  - Discomfort [Unknown]
  - Ventricular extrasystoles [Unknown]
  - Chest X-ray abnormal [Unknown]
  - Waist circumference increased [Unknown]
  - Lung opacity [Unknown]
  - Pleural effusion [Unknown]
  - Decreased appetite [Unknown]
  - Oedema peripheral [Unknown]
  - Dyspnoea exertional [Unknown]
  - Rales [Unknown]

NARRATIVE: CASE EVENT DATE: 20191101
